FAERS Safety Report 7949485-4 (Version None)
Quarter: 2011Q4

REPORT INFORMATION
  Report Type: 
  Country: None (occurrence: None)
  Receive Date: 20111130
  Receipt Date: 20111127
  Transmission Date: 20120403
  Serious: No
  Sender: FDA-Public Use
  Company Number: US-TEVA-309649USA

PATIENT
  Sex: Female
  Weight: 49.032 kg

DRUGS (1)
  1. PLAN B ONE-STEP [Suspect]
     Indication: POST COITAL CONTRACEPTION
     Dosage: 1.5 MILLIGRAM;
     Route: 048
     Dates: start: 20111102, end: 20111102

REACTIONS (6)
  - PELVIC PAIN [None]
  - VOMITING [None]
  - NAUSEA [None]
  - MENSTRUATION IRREGULAR [None]
  - DIARRHOEA [None]
  - MENSTRUATION DELAYED [None]
